FAERS Safety Report 8300596-3 (Version None)
Quarter: 2012Q2

REPORT INFORMATION
  Report Type: 
  Country: None (occurrence: None)
  Receive Date: 20120420
  Receipt Date: 20120409
  Transmission Date: 20120825
  Serious: Yes (Other)
  Sender: FDA-Public Use
  Company Number: PHEH2012US005138

PATIENT
  Sex: Male
  Weight: 82.73 kg

DRUGS (22)
  1. GLEEVEC [Suspect]
     Dosage: 50 MG - 100 MG, QOD
     Route: 048
     Dates: end: 20120301
  2. METOLAZONE [Concomitant]
     Dosage: 2.5 MG, UNK
  3. NEXIUM [Concomitant]
     Dosage: 40 MG, UNK
  4. POTASSIUM CHLORIDE [Concomitant]
     Dosage: 95 MG, UNK
  5. GLEEVEC [Suspect]
     Dosage: 200 MG, EVERY DAY FOR 2 WEEKS
     Route: 048
  6. LEVOTHYROXINE SODIUM [Concomitant]
     Dosage: 50 UG, UNK
  7. ALLOPURINOL [Concomitant]
     Dosage: 300 MG, UNK
  8. XANAX [Concomitant]
     Dosage: 2 MG, UNK
  9. AMBIEN [Concomitant]
     Dosage: 10 MG, UNK
  10. DIGOXIN [Concomitant]
     Dosage: 0.25 MG, UNK
  11. ALEVE                              /00256202/ [Concomitant]
  12. GLEEVEC [Suspect]
     Dosage: 50 MG, QOD
     Route: 048
     Dates: start: 20120227
  13. TORSEMIDE [Concomitant]
     Dosage: 20 MG, UNK
  14. WARFARIN SODIUM [Concomitant]
     Dosage: 5 MG, UNK
  15. AMIODARONE HCL [Concomitant]
     Dosage: 200 MG, UNK
  16. SPIRONOLACTONE [Concomitant]
     Dosage: 100 MG, UNK
  17. AMITIZA [Concomitant]
     Dosage: 8 UG, UNK
  18. ALBUTEROL [Concomitant]
     Dosage: 0.63 MG/3
  19. MULTI-VITAMINS [Concomitant]
  20. GLEEVEC [Suspect]
     Indication: GASTROINTESTINAL STROMAL TUMOUR
     Dosage: 100 MG, EVERY DAY FOR 2 WEEKS
     Route: 048
     Dates: start: 20120221
  21. ZOFRAN [Concomitant]
  22. COLCHICINE [Concomitant]
     Dosage: 0.6 MG, UNK

REACTIONS (7)
  - DYSPNOEA [None]
  - ASTHMA [None]
  - ABDOMINAL DISCOMFORT [None]
  - RESPIRATORY TRACT CONGESTION [None]
  - FATIGUE [None]
  - PRODUCTIVE COUGH [None]
  - NAUSEA [None]
